FAERS Safety Report 12922098 (Version 2)
Quarter: 2017Q1

REPORT INFORMATION
  Report Type: Spontaneous
  Country: US (occurrence: US)
  Receive Date: 20161108
  Receipt Date: 20170103
  Transmission Date: 20170428
  Serious: Yes (Other)
  Sender: FDA-Public Use
  Company Number: US-BAYER-2016-213678

PATIENT
  Age: 29 Year
  Sex: Female
  Weight: 94.79 kg

DRUGS (1)
  1. SKYLA [Suspect]
     Active Substance: LEVONORGESTREL
     Indication: CONTRACEPTION
     Dosage: 14 MCG/24HR, CONT
     Route: 015
     Dates: start: 20160505

REACTIONS (3)
  - Pregnancy with contraceptive device [None]
  - Haemorrhage in pregnancy [None]
  - Drug ineffective [None]
